FAERS Safety Report 9148824 (Version 3)
Quarter: 2015Q3

REPORT INFORMATION
  Report Type: Report from Study
  Country: US (occurrence: US)
  Receive Date: 20130308
  Receipt Date: 20150702
  Transmission Date: 20151125
  Serious: Yes (Hospitalization)
  Sender: FDA-Public Use
  Company Number: US-JNJFOC-20130300379

PATIENT
  Age: 27 Year
  Sex: Female
  Weight: 63.2 kg

DRUGS (15)
  1. AVIANE [Concomitant]
     Active Substance: ETHINYL ESTRADIOL\LEVONORGESTREL
     Dosage: 0.1-20 MG-MCG
     Route: 048
     Dates: start: 20101021
  2. ELECTROLYTE SOLUTION [Concomitant]
     Dates: start: 20130220
  3. USTEKINUMAB [Suspect]
     Active Substance: USTEKINUMAB
     Indication: CROHN^S DISEASE
     Route: 058
     Dates: start: 20121206, end: 20121206
  4. PROCHLORPERAZINE MALEATE. [Concomitant]
     Active Substance: PROCHLORPERAZINE MALEATE
     Indication: NAUSEA
     Route: 048
     Dates: start: 20120316
  5. METHOTREXATE [Concomitant]
     Active Substance: METHOTREXATE
  6. USTEKINUMAB [Suspect]
     Active Substance: USTEKINUMAB
     Route: 058
  7. DIPHENOXYLATE/ATROPINE [Concomitant]
     Active Substance: ATROPINE\DIPHENOXYLATE
     Indication: DIARRHOEA
     Dosage: 2.5/0.025 MG, 1-2 TABLETS TID AS NEEDED, NOT TO EXCEED 6/DAY
     Route: 048
     Dates: start: 20121031
  8. ERGOCALCIFEROL. [Concomitant]
     Active Substance: ERGOCALCIFEROL
     Indication: VITAMIN D DEFICIENCY
     Route: 048
     Dates: start: 20130213
  9. VICKS DAYQUIL [Concomitant]
     Active Substance: DEXTROMETHORPHAN HYDROBROMIDE\GUAIFENESIN
     Route: 048
     Dates: start: 20121227
  10. FOLIC ACID. [Concomitant]
     Active Substance: FOLIC ACID
     Route: 048
     Dates: start: 20120516
  11. ONDANSETRON HCL [Concomitant]
     Active Substance: ONDANSETRON HYDROCHLORIDE
     Indication: NAUSEA
     Route: 048
     Dates: start: 20121212
  12. ULTRAM [Concomitant]
     Active Substance: TRAMADOL HYDROCHLORIDE
     Indication: PAIN
  13. IRON [Concomitant]
     Active Substance: IRON
     Route: 048
     Dates: start: 2012
  14. PREDNISONE. [Concomitant]
     Active Substance: PREDNISONE
     Indication: CROHN^S DISEASE
     Dates: start: 20130124
  15. OMEPRAZOLE SODIUM [Concomitant]
     Active Substance: OMEPRAZOLE SODIUM
     Indication: DYSPEPSIA
     Route: 048
     Dates: start: 20111216

REACTIONS (1)
  - Abdominal infection [Not Recovered/Not Resolved]

NARRATIVE: CASE EVENT DATE: 20130221
